FAERS Safety Report 4806580-6 (Version None)
Quarter: 2005Q4

REPORT INFORMATION
  Report Type: 
  Country: None (occurrence: None)
  Receive Date: 20051019
  Receipt Date: 20050930
  Transmission Date: 20060501
  Serious: Yes (Hospitalization)
  Sender: FDA-Public Use
  Company Number: USA0509109635

PATIENT
  Age: 16 Year
  Sex: Male
  Weight: 91 kg

DRUGS (3)
  1. STRATTERA [Suspect]
     Indication: ATTENTION DEFICIT/HYPERACTIVITY DISORDER
     Dosage: 80 MG DAY
     Dates: start: 20050912, end: 20050930
  2. ADDERALL 10 [Concomitant]
  3. TRAZODONE HCL [Concomitant]

REACTIONS (5)
  - HALLUCINATION, AUDITORY [None]
  - INTENTIONAL DRUG MISUSE [None]
  - MOOD SWINGS [None]
  - MULTIPLE DRUG OVERDOSE [None]
  - SUICIDE ATTEMPT [None]
